FAERS Safety Report 21689459 (Version 1)
Quarter: 2022Q4

REPORT INFORMATION
  Report Type: Report from Study
  Country: US (occurrence: US)
  Receive Date: 20221206
  Receipt Date: 20221206
  Transmission Date: 20230113
  Serious: No
  Sender: FDA-Public Use
  Company Number: US-ABBVIE-4174379

PATIENT
  Sex: Male

DRUGS (1)
  1. HUMIRA [Suspect]
     Active Substance: ADALIMUMAB
     Indication: Ankylosing spondylitis
     Dosage: STRENGTH: 40MG
     Route: 058
     Dates: start: 202108

REACTIONS (3)
  - Arthropathy [Recovering/Resolving]
  - Joint stiffness [Unknown]
  - Musculoskeletal stiffness [Recovering/Resolving]
